FAERS Safety Report 8847163 (Version 6)
Quarter: 2013Q1

REPORT INFORMATION
  Report Type: Spontaneous
  Country: US (occurrence: US)
  Receive Date: 20121018
  Receipt Date: 20130107
  Transmission Date: 20140127
  Serious: Yes (Other)
  Sender: FDA-Public Use
  Company Number: US-MERCK-1210USA004871

PATIENT
  Age: 57 None
  Sex: Male

DRUGS (3)
  1. PEG-INTRON [Suspect]
     Indication: HEPATITIS C
     Dosage: 220 MICROGRAM, INJECTION
     Dates: start: 201209
  2. RIBAVIRIN [Suspect]
     Indication: HEPATITIS C
     Dosage: UNK
     Dates: start: 20120929
  3. VICTRELIS [Suspect]
     Indication: HEPATITIS C
     Dosage: UNK
     Dates: start: 20121103

REACTIONS (17)
  - Fall [Unknown]
  - Loss of consciousness [Unknown]
  - Loss of consciousness [Unknown]
  - Anaemia [Unknown]
  - Restlessness [Unknown]
  - Dysgeusia [Unknown]
  - Cough [Unknown]
  - Rhinitis [Unknown]
  - Dizziness [Unknown]
  - Fatigue [Unknown]
  - Dehydration [Unknown]
  - Fatigue [Unknown]
  - Irritability [Unknown]
  - Cough [Unknown]
  - Influenza like illness [Unknown]
  - Pyrexia [Not Recovered/Not Resolved]
  - Cough [Not Recovered/Not Resolved]
